FAERS Safety Report 24034006 (Version 1)
Quarter: 2024Q3

REPORT INFORMATION
  Report Type: Spontaneous
  Country: CN (occurrence: CN)
  Receive Date: 20240701
  Receipt Date: 20240701
  Transmission Date: 20241016
  Serious: Yes (Other)
  Sender: ORGANON
  Company Number: CN-ORGANON-O2406CHN002480

PATIENT
  Age: 71 Year
  Sex: Female
  Weight: 59 kg

DRUGS (1)
  1. DIPROSPAN [Suspect]
     Active Substance: BETAMETHASONE DIPROPIONATE\BETAMETHASONE SODIUM PHOSPHATE
     Indication: Chronic gastritis
     Dosage: 1 DOSAGE FORM, QD, (1 VIAL ONCE A DAY)
     Route: 030
     Dates: start: 20240614, end: 20240614

REACTIONS (2)
  - Pyrexia [Recovering/Resolving]
  - Chills [Recovering/Resolving]

NARRATIVE: CASE EVENT DATE: 20240614
